FAERS Safety Report 6234845-2 (Version None)
Quarter: 2009Q2

REPORT INFORMATION
  Report Type: 
  Country: None (occurrence: None)
  Receive Date: 20090618
  Receipt Date: 20090612
  Transmission Date: 20091009
  Serious: Yes (Other)
  Sender: FDA-Public Use
  Company Number: GB-MERCK-0906GBR00066

PATIENT
  Age: 85 Year
  Sex: Male
  Weight: 65 kg

DRUGS (2)
  1. ZETIA [Suspect]
     Route: 048
     Dates: start: 20090512, end: 20090514
  2. ASPIRIN [Concomitant]
     Route: 065
     Dates: start: 19951004

REACTIONS (1)
  - SYNCOPE [None]
